FAERS Safety Report 16115645 (Version 2)
Quarter: 2019Q3

REPORT INFORMATION
  Report Type: Report from Study
  Country: None (occurrence: US)
  Receive Date: 20190326
  Receipt Date: 20190905
  Transmission Date: 20191004
  Serious: Yes (Other)
  Sender: FDA-Public Use
  Company Number: US-ABBVIE-19K-163-2710590-00

PATIENT
  Sex: Female
  Weight: 95.34 kg

DRUGS (1)
  1. HUMIRA [Suspect]
     Active Substance: ADALIMUMAB
     Indication: RHEUMATOID ARTHRITIS
     Route: 058
     Dates: start: 201811

REACTIONS (5)
  - Nasal cyst [Unknown]
  - Bursitis [Unknown]
  - Nasal polyps [Unknown]
  - Polyp [Unknown]
  - Cerebral cyst [Unknown]
